FAERS Safety Report 16029902 (Version 5)
Quarter: 2019Q4

REPORT INFORMATION
  Report Type: Spontaneous
  Country: FR (occurrence: FR)
  Receive Date: 20190304
  Receipt Date: 20191120
  Transmission Date: 20200122
  Serious: Yes (Other)
  Sender: FDA-Public Use
  Company Number: FR-BIOVITRUM-2018BV000750

PATIENT
  Age: 48 Year
  Sex: Male
  Weight: 100 kg

DRUGS (9)
  1. ALPROLIX [Suspect]
     Active Substance: EFTRENONACOG ALFA
     Dosage: 6000 IU, QW
     Route: 042
     Dates: start: 20190122
  2. ALPROLIX [Suspect]
     Active Substance: EFTRENONACOG ALFA
     Dosage: 2000 IU, UNK
     Route: 042
  3. ALPROLIX [Suspect]
     Active Substance: EFTRENONACOG ALFA
     Dosage: 5000 IU, Q4D
     Route: 042
     Dates: start: 20190212, end: 20190212
  4. ALPROLIX [Suspect]
     Active Substance: EFTRENONACOG ALFA
     Dosage: 4000 IU, Q4D
     Route: 042
  5. BETAFACT [Concomitant]
     Dosage: 4000 U, QW
  6. ALPROLIX [Suspect]
     Active Substance: EFTRENONACOG ALFA
     Dosage: 4000 IU, Q4D
     Route: 042
     Dates: start: 20190201, end: 20190207
  7. ALPROLIX [Suspect]
     Active Substance: EFTRENONACOG ALFA
     Dosage: 4000 IU, Q4D
     Route: 042
  8. ALPROLIX [Suspect]
     Active Substance: EFTRENONACOG ALFA
     Indication: FACTOR IX DEFICIENCY
     Dosage: 4000 IU, QW
     Route: 042
     Dates: start: 201807
  9. ALPROLIX [Suspect]
     Active Substance: EFTRENONACOG ALFA
     Dosage: 2000 IU/ 5ML
     Route: 042
     Dates: start: 20181008

REACTIONS (10)
  - Synovial disorder [Unknown]
  - Product dose omission [Unknown]
  - Joint range of motion decreased [Unknown]
  - Joint effusion [Unknown]
  - Device issue [Unknown]
  - Accidental underdose [Unknown]
  - Haemorrhage [Unknown]
  - Haemarthrosis [Unknown]
  - Blood pressure abnormal [Unknown]
  - Arthropathy [Not Recovered/Not Resolved]

NARRATIVE: CASE EVENT DATE: 2018
